FAERS Safety Report 21897459 (Version 1)
Quarter: 2023Q1

REPORT INFORMATION
  Report Type: Spontaneous
  Country: DE (occurrence: DE)
  Receive Date: 20230123
  Receipt Date: 20230123
  Transmission Date: 20230418
  Serious: Yes (Death, Other)
  Sender: FDA-Public Use
  Company Number: DE-BAYER-2023A003287

PATIENT
  Age: 33 Year
  Sex: Female

DRUGS (2)
  1. GADOBUTROL [Suspect]
     Active Substance: GADOBUTROL
     Indication: Magnetic resonance imaging
     Dosage: 2 MRIS WITH CUMULATIVE DOSE OF 16 ML
     Dates: start: 200703, end: 200703
  2. GADODIAMIDE [Suspect]
     Active Substance: GADODIAMIDE
     Dosage: 6 DOSES, TOTAL EXPOSITION 95 ML
     Dates: start: 200509, end: 200612

REACTIONS (8)
  - Muscle fibrosis [Fatal]
  - Arrhythmia [Fatal]
  - Cardiac arrest [Fatal]
  - Skin ulcer [None]
  - Extremity necrosis [None]
  - Skin fibrosis [None]
  - Joint contracture [None]
  - Contrast media deposition [None]
